FAERS Safety Report 16158688 (Version 1)
Quarter: 2019Q2

REPORT INFORMATION
  Report Type: Spontaneous
  Country: SE (occurrence: SE)
  Receive Date: 20190404
  Receipt Date: 20190404
  Transmission Date: 20190711
  Serious: Yes (Hospitalization, Disabling)
  Sender: FDA-Public Use
  Company Number: SE-US WORLDMEDS, LLC-E2B_00002888

PATIENT
  Age: 80 Year
  Sex: Male

DRUGS (3)
  1. SINEMET [Concomitant]
     Active Substance: CARBIDOPA\LEVODOPA
  2. XADAGO [Suspect]
     Active Substance: SAFINAMIDE MESYLATE
     Indication: PARKINSON^S DISEASE
  3. XADAGO [Suspect]
     Active Substance: SAFINAMIDE MESYLATE
     Dates: end: 20181010

REACTIONS (9)
  - Retinal detachment [Not Recovered/Not Resolved]
  - Myalgia [Not Recovered/Not Resolved]
  - Parkinson^s disease [Not Recovered/Not Resolved]
  - Gait disturbance [Not Recovered/Not Resolved]
  - Fatigue [Not Recovered/Not Resolved]
  - Eye irritation [Not Recovered/Not Resolved]
  - Musculoskeletal stiffness [Not Recovered/Not Resolved]
  - Sleep disorder [Not Recovered/Not Resolved]
  - Dizziness [Not Recovered/Not Resolved]

NARRATIVE: CASE EVENT DATE: 2018
